FAERS Safety Report 8344612-1 (Version None)
Quarter: 2012Q2

REPORT INFORMATION
  Report Type: 
  Country: None (occurrence: None)
  Receive Date: 20120508
  Receipt Date: 20120423
  Transmission Date: 20120825
  Serious: Yes (Other)
  Sender: FDA-Public Use
  Company Number: GR-ROCHE-1062392

PATIENT
  Age: 65 Year
  Sex: Male

DRUGS (2)
  1. AVASTIN [Suspect]
     Indication: EYE OEDEMA
     Route: 031
     Dates: start: 20060501
  2. DEPO-MEDROL [Suspect]
     Indication: EYE OEDEMA
     Route: 031

REACTIONS (4)
  - CORNEAL DISORDER [None]
  - RETINAL TEAR [None]
  - VISION BLURRED [None]
  - VISUAL IMPAIRMENT [None]
